FAERS Safety Report 6648610-5 (Version None)
Quarter: 2010Q1

REPORT INFORMATION
  Report Type: 
  Country: None (occurrence: None)
  Receive Date: 20100324
  Receipt Date: 20100219
  Transmission Date: 20100710
  Serious: Yes (Other)
  Sender: FDA-Public Use
  Company Number: FR-BAYER-201016373GPV

PATIENT
  Age: 45 Year
  Sex: Male

DRUGS (1)
  1. BETAFERON [Suspect]
     Indication: MULTIPLE SCLEROSIS
     Route: 065

REACTIONS (3)
  - AFFECTIVE DISORDER [None]
  - HYPERTENSION [None]
  - OVERWEIGHT [None]
